FAERS Safety Report 5704447-2 (Version None)
Quarter: 2008Q2

REPORT INFORMATION
  Report Type: 
  Country: None (occurrence: None)
  Receive Date: 20080411
  Receipt Date: 20080411
  Transmission Date: 20081010
  Serious: Yes (Other)
  Sender: FDA-Public Use
  Company Number: None

PATIENT
  Sex: Female
  Weight: 19.0511 kg

DRUGS (2)
  1. TRIAMINIC VAPOR ( MENTHOL-CAMPHOR) [Suspect]
     Indication: NASAL CONGESTION
     Dosage: 1 PATCH 3 TIMES DAILY
     Dates: start: 20080310, end: 20080313
  2. TRIAMINIC VAPOR ( MENTHOL-CAMPHOR) [Suspect]
     Indication: SINUSITIS
     Dosage: 1 PATCH 3 TIMES DAILY
     Dates: start: 20080310, end: 20080313

REACTIONS (2)
  - APPLICATION SITE IRRITATION [None]
  - PHARMACEUTICAL PRODUCT COMPLAINT [None]
